FAERS Safety Report 10223221 (Version 1)
Quarter: 2014Q2

REPORT INFORMATION
  Report Type: Spontaneous
  Country: US (occurrence: None)
  Receive Date: 20140605
  Receipt Date: 20140605
  Transmission Date: 20141212
  Serious: Yes (Hospitalization, Other)
  Sender: FDA-Public Use
  Company Number: UNT-2014-001118

PATIENT
  Age: 66 Year
  Sex: Female
  Weight: 114.7 kg

DRUGS (2)
  1. REMODULIN (TREPORSTINIL SODIUM) INJECTION, 2.5 MG/ML [Suspect]
     Indication: COR PULMONALE CHRONIC
     Route: 041
     Dates: start: 20110816
  2. COUMADIN (WARFARIN SODIUM) [Concomitant]

REACTIONS (1)
  - Cardiac failure congestive [None]
